FAERS Safety Report 4587071-7 (Version None)
Quarter: 2005Q1

REPORT INFORMATION
  Report Type: 
  Country: None (occurrence: None)
  Receive Date: 20050214
  Receipt Date: 20050203
  Transmission Date: 20050727
  Serious: No
  Sender: FDA-Public Use
  Company Number: 2005AP01083

PATIENT
  Age: 34 Year
  Sex: Female

DRUGS (3)
  1. SEROQUEL [Suspect]
     Dosage: 50 MG DAILY PO
     Route: 048
     Dates: start: 20040605, end: 20040608
  2. AROPAX [Suspect]
     Dosage: 40 MG DAILY PO
     Route: 048
     Dates: start: 20030101, end: 20040608
  3. ACETAMINOPHEN W/ CODEINE [Concomitant]

REACTIONS (1)
  - SEROTONIN SYNDROME [None]
